FAERS Safety Report 11982223 (Version 1)
Quarter: 2016Q1

REPORT INFORMATION
  Report Type: Spontaneous
  Country: US (occurrence: None)
  Receive Date: 20160129
  Receipt Date: 20160129
  Transmission Date: 20160526
  Serious: Yes (Hospitalization)
  Sender: FDA-Public Use
  Company Number: None

PATIENT
  Age: 69 Year
  Sex: Female
  Weight: 97.1 kg

DRUGS (8)
  1. APAP [Concomitant]
     Active Substance: ACETAMINOPHEN
  2. BUMEX [Concomitant]
     Active Substance: BUMETANIDE
  3. NEURONTIN [Concomitant]
     Active Substance: GABAPENTIN
  4. OXYCODONE [Suspect]
     Active Substance: OXYCODONE
     Indication: PAIN
     Dosage: 10 MG, Q8HR, PRN
     Route: 048
  5. LORAZEPAM. [Suspect]
     Active Substance: LORAZEPAM
  6. HUMALOG [Suspect]
     Active Substance: INSULIN LISPRO
  7. LANTUS [Suspect]
     Active Substance: INSULIN GLARGINE
     Indication: DIABETES MELLITUS
     Dosage: 55 UNITS, NIGHTLY
     Route: 058
  8. CARDIZEM [Concomitant]
     Active Substance: DILTIAZEM HYDROCHLORIDE

REACTIONS (6)
  - Urinary tract infection [None]
  - Hypoglycaemia [None]
  - Generalised oedema [None]
  - Dyspnoea [None]
  - Hyperventilation [None]
  - Somnolence [None]

NARRATIVE: CASE EVENT DATE: 20150603
